FAERS Safety Report 6097453-2 (Version None)
Quarter: 2009Q1

REPORT INFORMATION
  Report Type: 
  Country: None (occurrence: None)
  Receive Date: 20090227
  Receipt Date: 20080806
  Transmission Date: 20090719
  Serious: No
  Sender: FDA-Public Use
  Company Number: A0731752A

PATIENT
  Age: 57 Year
  Sex: Female

DRUGS (5)
  1. IMITREX [Suspect]
     Indication: MIGRAINE
     Dosage: 1INJ AS REQUIRED
     Route: 058
  2. PREVACID [Concomitant]
  3. MULTI-VITAMINS [Concomitant]
  4. CALCIUM [Concomitant]
  5. IRON [Concomitant]

REACTIONS (3)
  - BURNING SENSATION [None]
  - MIGRAINE [None]
  - PRODUCT QUALITY ISSUE [None]
